FAERS Safety Report 5019915-9 (Version None)
Quarter: 2006Q2

REPORT INFORMATION
  Report Type: 
  Country: None (occurrence: None)
  Receive Date: 20060605
  Receipt Date: 20060605
  Transmission Date: 20061013
  Serious: Yes (Hospitalization, Other)
  Sender: FDA-Public Use
  Company Number: None

PATIENT
  Sex: Female
  Weight: 90.9 kg

DRUGS (5)
  1. CYCLOPHOSPHAMIDE [Suspect]
     Indication: BREAST CANCER
     Dosage: 1200 MG
     Dates: end: 20060302
  2. DOXORUBICIN HYDROCHLORIDE [Suspect]
     Dosage: 120 MG
     Dates: end: 20060302
  3. TAXOL [Suspect]
     Dosage: 0 MG
  4. . [Concomitant]
  5. . [Concomitant]

REACTIONS (8)
  - ANAEMIA [None]
  - FATIGUE [None]
  - GASTRITIS [None]
  - GASTROINTESTINAL HAEMORRHAGE [None]
  - HAEMORRHOIDS [None]
  - PLATELET COUNT DECREASED [None]
  - RECTAL POLYP [None]
  - THROMBOSIS [None]
